FAERS Safety Report 9735197 (Version 3)
Quarter: 2013Q4

REPORT INFORMATION
  Report Type: Spontaneous
  Country: US (occurrence: US)
  Receive Date: 20131206
  Receipt Date: 20131219
  Transmission Date: 20140711
  Serious: No
  Sender: FDA-Public Use
  Company Number: US-PFIZER INC-2013345996

PATIENT
  Sex: Female

DRUGS (6)
  1. FLAGYL [Suspect]
     Indication: CROHN^S DISEASE
     Dosage: UNK
  2. METHOTREXATE SODIUM [Suspect]
     Indication: CROHN^S DISEASE
     Dosage: UNK
  3. REMICADE [Suspect]
     Indication: CROHN^S DISEASE
     Dosage: UNK
  4. HUMIRA [Suspect]
     Indication: CROHN^S DISEASE
     Dosage: UNK
  5. CIMZIA [Suspect]
     Indication: CROHN^S DISEASE
     Dosage: UNK
  6. CELLCEPT [Suspect]
     Indication: CROHN^S DISEASE
     Dosage: UNK

REACTIONS (1)
  - Drug ineffective [Unknown]
